FAERS Safety Report 24114533 (Version 12)
Quarter: 2025Q3

REPORT INFORMATION
  Report Type: Report from Study
  Country: CO (occurrence: CO)
  Receive Date: 20240720
  Receipt Date: 20250822
  Transmission Date: 20251020
  Serious: Yes (Disabling)
  Sender: TAKEDA
  Company Number: CO-TAKEDA-CO202006200

PATIENT
  Age: 41 Year
  Sex: Female
  Weight: 67 kg

DRUGS (18)
  1. ICATIBANT [Suspect]
     Active Substance: ICATIBANT ACETATE
     Indication: Hereditary angioedema
  2. ICATIBANT [Suspect]
     Active Substance: ICATIBANT ACETATE
  3. ICATIBANT [Suspect]
     Active Substance: ICATIBANT ACETATE
     Dosage: UNK UNK, 1/WEEK
  4. ICATIBANT [Suspect]
     Active Substance: ICATIBANT ACETATE
     Dosage: 1 DOSAGE FORM, Q6HR
  5. ICATIBANT [Suspect]
     Active Substance: ICATIBANT ACETATE
     Dosage: 30 MILLIGRAM, Q6HR
  6. ICATIBANT [Suspect]
     Active Substance: ICATIBANT ACETATE
     Dosage: 30 MILLIGRAM, 1/WEEK
  7. ICATIBANT [Suspect]
     Active Substance: ICATIBANT ACETATE
  8. ICATIBANT [Suspect]
     Active Substance: ICATIBANT ACETATE
  9. ICATIBANT [Suspect]
     Active Substance: ICATIBANT ACETATE
  10. ICATIBANT [Suspect]
     Active Substance: ICATIBANT ACETATE
  11. TAKHZYRO [Suspect]
     Active Substance: LANADELUMAB-FLYO
     Indication: Hereditary angioedema
     Dosage: 150 MILLIGRAM, 2/MONTH
     Dates: start: 20230217
  12. TAKHZYRO [Suspect]
     Active Substance: LANADELUMAB-FLYO
     Dosage: 300 MILLIGRAM, 2/MONTH
  13. TAKHZYRO [Suspect]
     Active Substance: LANADELUMAB-FLYO
     Dosage: 300 MILLIGRAM, Q2WEEKS
  14. TAKHZYRO [Suspect]
     Active Substance: LANADELUMAB-FLYO
     Dosage: 150 MILLIGRAM, 2/MONTH
  15. TAKHZYRO [Suspect]
     Active Substance: LANADELUMAB-FLYO
  16. TAKHZYRO [Suspect]
     Active Substance: LANADELUMAB-FLYO
     Dosage: 300 MILLIGRAM, 2/MONTH
  17. TAKHZYRO [Suspect]
     Active Substance: LANADELUMAB-FLYO
     Dosage: 300 MILLIGRAM, Q2WEEKS
  18. TAKHZYRO [Suspect]
     Active Substance: LANADELUMAB-FLYO

REACTIONS (24)
  - Limb mass [Unknown]
  - Fear [Unknown]
  - Influenza [Recovered/Resolved]
  - Dysmenorrhoea [Recovered/Resolved]
  - Product availability issue [Unknown]
  - Product dose omission issue [Unknown]
  - Product distribution issue [Unknown]
  - Gastritis [Recovered/Resolved]
  - Hereditary angioedema [Recovered/Resolved]
  - Treatment noncompliance [Unknown]
  - Weight decreased [Unknown]
  - Pain [Recovered/Resolved]
  - Malaise [Recovering/Resolving]
  - Weight increased [Unknown]
  - Body height decreased [Unknown]
  - Decreased appetite [Recovered/Resolved]
  - Chills [Recovering/Resolving]
  - Product prescribing error [Recovered/Resolved]
  - Discomfort [Unknown]
  - Chest discomfort [Not Recovered/Not Resolved]
  - Abdominal distension [Recovered/Resolved]
  - Chest pain [Recovered/Resolved]
  - Headache [Recovering/Resolving]
  - Pyrexia [Recovering/Resolving]

NARRATIVE: CASE EVENT DATE: 20201022
